FAERS Safety Report 6262146-5 (Version None)
Quarter: 2009Q3

REPORT INFORMATION
  Report Type: 
  Country: None (occurrence: None)
  Receive Date: 20090709
  Receipt Date: 20090706
  Transmission Date: 20100115
  Serious: Yes (Hospitalization)
  Sender: FDA-Public Use
  Company Number: DE-BAYER-200925040GPV

PATIENT
  Age: 81 Year
  Sex: Male
  Weight: 100 kg

DRUGS (16)
  1. NEXAVAR [Suspect]
     Indication: RENAL CELL CARCINOMA
     Dosage: UNIT DOSE: 200 MG
     Route: 048
     Dates: start: 20080418
  2. NEXAVAR [Suspect]
     Dosage: UNIT DOSE: 200 MG
     Route: 048
     Dates: start: 20081014
  3. NEXAVAR [Suspect]
     Dosage: UNIT DOSE: 200 MG
     Route: 048
     Dates: start: 20080605
  4. NEXAVAR [Suspect]
     Dosage: UNIT DOSE: 200 MG
     Route: 048
     Dates: start: 20080401
  5. NEXAVAR [Suspect]
     Dosage: UNIT DOSE: 200 MG
     Route: 048
     Dates: start: 20080201
  6. MARCUMAR [Concomitant]
     Dates: start: 20030101, end: 20090216
  7. ALLOPURINOL [Concomitant]
     Dosage: 300
     Dates: start: 20080227
  8. RAMIPRIL [Concomitant]
     Dosage: 5 MG
  9. RAMIPRIL [Concomitant]
     Dosage: 5/25
  10. METAMIDOL [Concomitant]
  11. AMLODIPINE [Concomitant]
  12. METODURA [Concomitant]
     Dosage: 50
  13. LOPERAMIDE [Concomitant]
     Dates: start: 20080403, end: 20080414
  14. KALINOR [Concomitant]
     Dates: start: 20080716, end: 20080719
  15. OMEP [Concomitant]
     Dosage: 20
     Dates: start: 20080814
  16. FLOSAMEN [Concomitant]
     Dates: start: 20080814

REACTIONS (6)
  - ABDOMINAL PAIN UPPER [None]
  - ASTHENIA [None]
  - DIARRHOEA [None]
  - GASTROINTESTINAL HAEMORRHAGE [None]
  - INTRA-ABDOMINAL HAEMORRHAGE [None]
  - LABORATORY TEST ABNORMAL [None]
